FAERS Safety Report 25009747 (Version 1)
Quarter: 2025Q1

REPORT INFORMATION
  Report Type: Spontaneous
  Country: HR (occurrence: HR)
  Receive Date: 20250225
  Receipt Date: 20250225
  Transmission Date: 20250408
  Serious: Yes (Death, Other)
  Sender: NOVARTIS
  Company Number: HR-002147023-NVSC2025HR031344

PATIENT
  Sex: Female

DRUGS (2)
  1. DABRAFENIB [Suspect]
     Active Substance: DABRAFENIB
     Indication: Metastatic malignant melanoma
     Route: 065
     Dates: start: 20240602, end: 20240929
  2. TRAMETINIB [Suspect]
     Active Substance: TRAMETINIB
     Indication: Metastatic malignant melanoma
     Route: 065
     Dates: start: 20240602, end: 20240929

REACTIONS (6)
  - COVID-19 [Fatal]
  - Pleural effusion [Unknown]
  - Disease progression [Unknown]
  - Metastatic malignant melanoma [Unknown]
  - Mass [Unknown]
  - Nodule [Unknown]

NARRATIVE: CASE EVENT DATE: 20240612
